FAERS Safety Report 4667426-2 (Version None)
Quarter: 2005Q2

REPORT INFORMATION
  Report Type: 
  Country: None (occurrence: None)
  Receive Date: 20050517
  Receipt Date: 20050411
  Transmission Date: 20051028
  Serious: Yes (Disabling)
  Sender: FDA-Public Use
  Company Number: PHEH2005US04164

PATIENT
  Age: 53 Year
  Sex: Female

DRUGS (4)
  1. GLEEVEC [Suspect]
     Dosage: 100 MG, QID, ORAL
     Route: 048
     Dates: start: 20000101
  2. LEXAPRO [Concomitant]
  3. TRAZODONE [Concomitant]
  4. ATIVAN [Concomitant]

REACTIONS (3)
  - DEPRESSION [None]
  - DIARRHOEA [None]
  - MEMORY IMPAIRMENT [None]
